FAERS Safety Report 4946408-7 (Version None)
Quarter: 2006Q1

REPORT INFORMATION
  Report Type: 
  Country: None (occurrence: None)
  Receive Date: 20060317
  Receipt Date: 20060221
  Transmission Date: 20060701
  Serious: Yes (Hospitalization, Other)
  Sender: FDA-Public Use
  Company Number: AU-AVENTIS-200611644GDDC

PATIENT
  Age: 61 Year
  Sex: Male

DRUGS (12)
  1. TAXOTERE [Suspect]
     Indication: PROSTATE CANCER
     Route: 042
     Dates: start: 20060208, end: 20060208
  2. TAXOTERE [Suspect]
     Route: 042
     Dates: start: 20060303, end: 20060303
  3. INVESTIGATIONAL DRUG [Suspect]
     Indication: PROSTATE CANCER
     Dates: start: 20060118, end: 20060216
  4. INVESTIGATIONAL DRUG [Suspect]
     Dosage: DOSE: UNK
  5. LANSOPRAZOLE [Concomitant]
     Indication: GASTROOESOPHAGEAL REFLUX DISEASE
  6. LEUPRORELIN [Concomitant]
     Indication: PROSTATE CANCER
     Dosage: DOSE: UNK
     Dates: start: 19940101
  7. PERINDOPRIL [Concomitant]
     Indication: HYPERTENSION
     Dates: start: 19950101
  8. ISOPTIN [Concomitant]
     Indication: HYPERTENSION
     Dates: start: 19950101
  9. CANDESARTAN [Concomitant]
     Indication: HYPERTENSION
     Dosage: DOSE: 16/12.5
     Dates: start: 20050101
  10. PRAZOSIN [Concomitant]
     Indication: PROSTATE EXAMINATION ABNORMAL
     Dates: start: 20050901
  11. METOCLOPRAMIDE [Concomitant]
     Indication: NAUSEA
     Dates: start: 20060119
  12. PREDNISONE [Concomitant]
     Indication: CHEMOTHERAPY
     Dates: start: 20060119

REACTIONS (3)
  - HEMIPARESIS [None]
  - HYPOTENSION [None]
  - NEUTROPENIC SEPSIS [None]
